FAERS Safety Report 6565018-1 (Version None)
Quarter: 2010Q1

REPORT INFORMATION
  Report Type: 
  Country: None (occurrence: None)
  Receive Date: 20100201
  Receipt Date: 20100125
  Transmission Date: 20100710
  Serious: Yes (Other)
  Sender: FDA-Public Use
  Company Number: US-BAYER-200931349NA

PATIENT
  Age: 36 Year
  Sex: Female

DRUGS (2)
  1. MIRENA [Suspect]
     Indication: CONTRACEPTION
     Dosage: CONTINUOUS
     Route: 015
     Dates: start: 20090709
  2. MIRENA [Suspect]
     Dosage: CONTINUOUS
     Route: 015
     Dates: start: 20090801

REACTIONS (6)
  - CHEST DISCOMFORT [None]
  - DEVICE EXPULSION [None]
  - HEADACHE [None]
  - MALIGNANT HYPERTENSION [None]
  - PARAESTHESIA [None]
  - PROCEDURAL PAIN [None]
